FAERS Safety Report 11137550 (Version 1)
Quarter: 2015Q2

REPORT INFORMATION
  Report Type: Report from Study
  Country: TR (occurrence: TR)
  Receive Date: 20150526
  Receipt Date: 20150526
  Transmission Date: 20150821
  Serious: Yes (Other)
  Sender: FDA-Public Use
  Company Number: PHHY2015TR059334

PATIENT
  Sex: Female
  Weight: 19 kg

DRUGS (2)
  1. SOMATROPIN [Suspect]
     Active Substance: SOMATROPIN
     Dosage: 0.6 MG, QD FOR 5 DAYS
     Route: 058
     Dates: end: 20150508
  2. SOMATROPIN [Suspect]
     Active Substance: SOMATROPIN
     Indication: GROWTH HORMONE DEFICIENCY
     Dosage: 0.7 MG, QD FOR 10 DAYS
     Route: 058
     Dates: start: 20141219

REACTIONS (3)
  - Urinary tract infection [Not Recovered/Not Resolved]
  - Kidney enlargement [Not Recovered/Not Resolved]
  - Renal cyst [Not Recovered/Not Resolved]
